FAERS Safety Report 10221148 (Version 1)
Quarter: 2014Q2

REPORT INFORMATION
  Report Type: Report from Study
  Country: US (occurrence: US)
  Receive Date: 20140606
  Receipt Date: 20140606
  Transmission Date: 20141212
  Serious: Yes (Hospitalization)
  Sender: FDA-Public Use
  Company Number: US-MUNDIPHARMA DS AND PHARMACOVIGILANCE-USA-2014-0114550

PATIENT
  Age: 58 Year
  Sex: Female

DRUGS (2)
  1. OXY CR TAB [Suspect]
     Indication: RHEUMATOID ARTHRITIS
     Dosage: UNK
     Dates: start: 2010
  2. OXY CR TAB [Suspect]
     Dosage: 40 MG, TID
     Route: 048
     Dates: start: 20140204, end: 201403

REACTIONS (2)
  - Thrombocytopenia [Unknown]
  - Renal failure [Recovered/Resolved]
